FAERS Safety Report 16325769 (Version 1)
Quarter: 2019Q2

REPORT INFORMATION
  Report Type: Spontaneous
  Country: US (occurrence: US)
  Receive Date: 20190517
  Receipt Date: 20190517
  Transmission Date: 20190711
  Serious: No
  Sender: FDA-Public Use
  Company Number: US-COLLEGIUM PHARMACEUTICAL, INC.-2019CGM00130

PATIENT
  Age: 69 Year
  Sex: Male
  Weight: 56.69 kg

DRUGS (7)
  1. RELISTOR [Concomitant]
     Active Substance: METHYLNALTREXONE BROMIDE
     Dosage: 450 MG, 1X/DAY
  2. PERCOCET [Concomitant]
     Active Substance: ACETAMINOPHEN\OXYCODONE HYDROCHLORIDE
     Dosage: 5 MG, 4X/DAY FOR BREAKTHROUGH PAIN
  3. RELISTOR [Concomitant]
     Active Substance: METHYLNALTREXONE BROMIDE
     Dosage: 150 MG, 1X/DAY
  4. VENTOLIN [Concomitant]
     Active Substance: ALBUTEROL SULFATE
     Dosage: UNK, AS NEEDED
  5. THEOPHYLLINE [Concomitant]
     Active Substance: THEOPHYLLINE ANHYDROUS
     Dosage: 300 MG, 3X/DAY
  6. XTAMPZA ER [Suspect]
     Active Substance: OXYCODONE
     Indication: PAIN
     Dosage: 36 MG, 2X/DAY
     Route: 048
     Dates: start: 20190228
  7. ARTHROTEC [Concomitant]
     Active Substance: DICLOFENAC SODIUM\MISOPROSTOL
     Dosage: 50 MG, 3X/DAY

REACTIONS (5)
  - Diarrhoea [Not Recovered/Not Resolved]
  - Nausea [Not Recovered/Not Resolved]
  - Drug ineffective [Not Recovered/Not Resolved]
  - Product substitution issue [Not Recovered/Not Resolved]
  - Vomiting [Not Recovered/Not Resolved]

NARRATIVE: CASE EVENT DATE: 20190228
